FAERS Safety Report 21741268 (Version 1)
Quarter: 2022Q4

REPORT INFORMATION
  Report Type: Spontaneous
  Country: US (occurrence: US)
  Receive Date: 20221216
  Receipt Date: 20221216
  Transmission Date: 20230113
  Serious: No
  Sender: FDA-Public Use
  Company Number: US-PFIZER INC-PV202200121568

PATIENT
  Age: 73 Year
  Sex: Female

DRUGS (1)
  1. XELJANZ XR [Suspect]
     Active Substance: TOFACITINIB CITRATE
     Dosage: UNK

REACTIONS (6)
  - Arthralgia [Unknown]
  - Sensitivity to weather change [Unknown]
  - Musculoskeletal stiffness [Unknown]
  - Contusion [Unknown]
  - Fatigue [Unknown]
  - Bronchitis [Recovering/Resolving]
